FAERS Safety Report 13731142 (Version 9)
Quarter: 2018Q3

REPORT INFORMATION
  Report Type: Report from Study
  Country: AU (occurrence: AU)
  Receive Date: 20170707
  Receipt Date: 20180824
  Transmission Date: 20181010
  Serious: Yes (Other)
  Sender: FDA-Public Use
  Company Number: AU-SA-2017SA116011

PATIENT
  Age: 48 Year
  Sex: Female
  Weight: 78 kg

DRUGS (11)
  1. VENTOLIN [Concomitant]
     Active Substance: ALBUTEROL SULFATE
     Dosage: 100 UG,QD
     Route: 055
     Dates: start: 1993
  2. DICLOFENAC [Concomitant]
     Active Substance: DICLOFENAC
     Dosage: 100 MG,QD
     Route: 048
     Dates: start: 20170610
  3. FLUTAMIDE. [Concomitant]
     Active Substance: FLUTAMIDE
     Dosage: 50 MG,QD
     Route: 048
     Dates: start: 2015
  4. SALINE [SODIUM CHLORIDE] [Concomitant]
     Active Substance: SODIUM CHLORIDE
     Dosage: 1 DF,QD
     Route: 045
     Dates: start: 20170301
  5. MOMETASONE FUROATE. [Suspect]
     Active Substance: MOMETASONE FUROATE
     Indication: NASAL POLYPS
     Dosage: 400 UG,QD
     Route: 045
     Dates: start: 20170216
  6. PARACETAMOL [Concomitant]
     Active Substance: ACETAMINOPHEN
     Dosage: 4 G,QD
     Route: 048
     Dates: start: 20170406
  7. PARACETAMOL [Concomitant]
     Active Substance: ACETAMINOPHEN
     Dosage: 4 G,QD
     Route: 048
     Dates: start: 20170610
  8. DUPILUMAB [Suspect]
     Active Substance: DUPILUMAB
     Dosage: 2 ML,QOW
     Route: 051
     Dates: start: 20170328, end: 20170623
  9. MINOXIDIL. [Concomitant]
     Active Substance: MINOXIDIL
     Dosage: 1 MG,QD
     Route: 048
     Dates: start: 2015
  10. DUPILUMAB [Suspect]
     Active Substance: DUPILUMAB
     Indication: NASAL POLYPS
     Dosage: 2 ML,1X
     Route: 051
     Dates: start: 20170316, end: 20170316
  11. SERETIDE [Concomitant]
     Active Substance: FLUTICASONE PROPIONATE\SALMETEROL XINAFOATE
     Dosage: UNK UNK,QD
     Route: 055

REACTIONS (1)
  - Eosinophilia [Recovered/Resolved]

NARRATIVE: CASE EVENT DATE: 20170610
